FAERS Safety Report 6821754-0 (Version None)
Quarter: 2010Q3

REPORT INFORMATION
  Report Type: 
  Country: None (occurrence: None)
  Receive Date: 20100702
  Receipt Date: 20100622
  Transmission Date: 20110219
  Serious: Yes (Hospitalization)
  Sender: FDA-Public Use
  Company Number: 009969

PATIENT
  Age: 79 Year
  Sex: Male
  Weight: 57 kg

DRUGS (2)
  1. PLETAL [Suspect]
     Indication: PLATELET AGGREGATION INHIBITION
     Dosage: 100 MG, BID, ORAL
     Route: 048
     Dates: start: 20080805, end: 20100522
  2. ASPIRIN [Suspect]
     Indication: CEREBRAL INFARCTION
     Dosage: 100 MG, QD, ORAL
     Route: 048
     Dates: start: 20081024, end: 20100522

REACTIONS (5)
  - CEREBELLAR HAEMORRHAGE [None]
  - DIZZINESS [None]
  - LACUNAR INFARCTION [None]
  - MEMORY IMPAIRMENT [None]
  - PNEUMONIA [None]
